FAERS Safety Report 9136309 (Version 1)
Quarter: 2013Q1

REPORT INFORMATION
  Report Type: Spontaneous
  Country: US (occurrence: US)
  Receive Date: 20130219
  Receipt Date: 20130219
  Transmission Date: 20140127
  Serious: No
  Sender: FDA-Public Use
  Company Number: US-BRISTOL-MYERS SQUIBB COMPANY-16514127

PATIENT
  Age: 69 Year
  Sex: Male

DRUGS (3)
  1. ORENCIA [Suspect]
     Indication: ARTHRITIS
     Dosage: NO OF INF:3
     Route: 042
     Dates: end: 2012
  2. PREDNISONE [Concomitant]
  3. AZATHIOPRINE [Concomitant]

REACTIONS (1)
  - Macule [Unknown]
